FAERS Safety Report 11432724 (Version 1)
Quarter: 2015Q3

REPORT INFORMATION
  Report Type: Spontaneous
  Country: JP (occurrence: JP)
  Receive Date: 20150828
  Receipt Date: 20150828
  Transmission Date: 20151125
  Serious: Yes (Death)
  Sender: FDA-Public Use
  Company Number: JP-PFIZER INC-2015280719

PATIENT
  Age: 8 Decade
  Sex: Male

DRUGS (2)
  1. INLYTA [Suspect]
     Active Substance: AXITINIB
     Dosage: 3 MG, 2X/DAY(5 DAYS ON TREATMENT FOLLOWED BY 2 DAYS OFF)
     Route: 048
     Dates: start: 201507
  2. INLYTA [Suspect]
     Active Substance: AXITINIB
     Indication: METASTATIC RENAL CELL CARCINOMA
     Dosage: 5 MG, 2X/DAY
     Route: 048
     Dates: start: 201504

REACTIONS (3)
  - Platelet count decreased [Unknown]
  - Arrhythmia [Fatal]
  - Fatigue [Unknown]

NARRATIVE: CASE EVENT DATE: 20150809
